FAERS Safety Report 25572281 (Version 1)
Quarter: 2025Q3

REPORT INFORMATION
  Report Type: Spontaneous
  Country: US (occurrence: US)
  Receive Date: 20250717
  Receipt Date: 20250717
  Transmission Date: 20251020
  Serious: No
  Sender: MERCK SHARP & DOHME LLC
  Company Number: US-009507513-2300269

PATIENT
  Age: 4 Year
  Sex: Female
  Weight: 12.3 kg

DRUGS (5)
  1. POSACONAZOLE [Suspect]
     Active Substance: POSACONAZOLE
     Indication: Antifungal treatment
     Route: 048
  2. CEFEPIME [Concomitant]
     Active Substance: CEFEPIME HYDROCHLORIDE
  3. VANCOMYCIN [Concomitant]
     Active Substance: VANCOMYCIN
  4. MICAFUNGIN [Concomitant]
     Active Substance: MICAFUNGIN SODIUM
  5. LAMB [Concomitant]
     Active Substance: LAMB

REACTIONS (1)
  - Product use in unapproved indication [Unknown]
